FAERS Safety Report 7579383-X (Version None)
Quarter: 2011Q2

REPORT INFORMATION
  Report Type: 
  Country: None (occurrence: None)
  Receive Date: 20110629
  Receipt Date: 20110621
  Transmission Date: 20111010
  Serious: Yes (Other)
  Sender: FDA-Public Use
  Company Number: US-BIOGENIDEC-2011BI017032

PATIENT
  Sex: Male

DRUGS (1)
  1. TYSABRI [Suspect]
     Indication: MULTIPLE SCLEROSIS
     Route: 042
     Dates: start: 20100625, end: 20110414

REACTIONS (9)
  - SYNCOPE [None]
  - MEMORY IMPAIRMENT [None]
  - CONVULSION [None]
  - DEPRESSED LEVEL OF CONSCIOUSNESS [None]
  - EXCORIATION [None]
  - DEPRESSION [None]
  - GAIT DISTURBANCE [None]
  - FALL [None]
  - MULTIPLE SCLEROSIS RELAPSE [None]
